FAERS Safety Report 7294979-0 (Version None)
Quarter: 2011Q1

REPORT INFORMATION
  Report Type: 
  Country: None (occurrence: None)
  Receive Date: 20110216
  Receipt Date: 20110207
  Transmission Date: 20110831
  Serious: Yes (Hospitalization)
  Sender: FDA-Public Use
  Company Number: US-ELI_LILLY_AND_COMPANY-US201102002027

PATIENT
  Sex: Female

DRUGS (14)
  1. HUMALOG [Suspect]
     Indication: TYPE 2 DIABETES MELLITUS
     Dosage: UNK, UNKNOWN
  2. LEXAPRO [Concomitant]
  3. FOLIC ACID [Concomitant]
  4. FORTEO [Suspect]
     Indication: OSTEOPENIA
     Dosage: 20 UG, DAILY (1/D)
     Dates: start: 20101101, end: 20110101
  5. DIFLUCAN [Concomitant]
  6. LASIX [Concomitant]
  7. PREDNISONE [Concomitant]
  8. LANTUS [Concomitant]
  9. OXYCONTIN [Concomitant]
  10. NEURONTIN [Concomitant]
  11. COUMADIN [Concomitant]
  12. CALCIUM [Concomitant]
  13. NEXIUM [Concomitant]
  14. OXYCODONE [Concomitant]

REACTIONS (7)
  - GAIT DISTURBANCE [None]
  - EXPIRED DRUG ADMINISTERED [None]
  - CELLULITIS [None]
  - INTENTIONAL DRUG MISUSE [None]
  - OFF LABEL USE [None]
  - MEMORY IMPAIRMENT [None]
  - INFECTION [None]
